FAERS Safety Report 17426942 (Version 1)
Quarter: 2020Q1

REPORT INFORMATION
  Report Type: Spontaneous
  Country: FR (occurrence: FR)
  Receive Date: 20200218
  Receipt Date: 20200218
  Transmission Date: 20200409
  Serious: Yes (Hospitalization)
  Sender: FDA-Public Use
  Company Number: FR-ACCORD-172815

PATIENT
  Age: 48 Year
  Sex: Female

DRUGS (3)
  1. DOCETAXEL. [Suspect]
     Active Substance: DOCETAXEL
     Indication: NEOPLASM MALIGNANT
     Route: 042
     Dates: start: 201910, end: 20191204
  2. CICLOSPORIN [Suspect]
     Active Substance: CYCLOSPORINE
     Indication: BREAST CANCER
     Route: 042
     Dates: end: 20190920
  3. GLYCYRRHIZIC ACID/GLYCYRRHIZIC ACID/AMMONIUM SA [Suspect]
     Active Substance: AMMONIUM GLYCYRRHIZATE
     Indication: PROPHYLAXIS
     Route: 045
     Dates: start: 201912, end: 202001

REACTIONS (2)
  - Vasculitis [Not Recovered/Not Resolved]
  - Reversible cerebral vasoconstriction syndrome [Not Recovered/Not Resolved]

NARRATIVE: CASE EVENT DATE: 202001
